FAERS Safety Report 15732400 (Version 1)
Quarter: 2018Q4

REPORT INFORMATION
  Report Type: Spontaneous
  Country: US (occurrence: US)
  Receive Date: 20181217
  Receipt Date: 20181217
  Transmission Date: 20190205
  Serious: Yes (Other)
  Sender: FDA-Public Use
  Company Number: None

PATIENT
  Age: 36 Year
  Sex: Female

DRUGS (15)
  1. PROGESTERONE. [Concomitant]
     Active Substance: PROGESTERONE
  2. MENOPUR [Concomitant]
     Active Substance: FOLLITROPIN\LUTEINIZING HORMONE
  3. AZITHROMYCIN ANHYDROUS. [Concomitant]
     Active Substance: AZITHROMYCIN ANHYDROUS
  4. FOLLISTIM [Concomitant]
     Active Substance: FOLLITROPIN
  5. HCG [Concomitant]
     Active Substance: GONADOTROPHIN, CHORIONIC
  6. ADVAIR HFA [Concomitant]
     Active Substance: FLUTICASONE PROPIONATE\SALMETEROL XINAFOATE
  7. CEPHALEXIN. [Concomitant]
     Active Substance: CEPHALEXIN
  8. LETROZOLE. [Concomitant]
     Active Substance: LETROZOLE
  9. ESTRADIOL. [Suspect]
     Active Substance: ESTRADIOL
     Indication: INFERTILITY
     Dosage: ?          OTHER FREQUENCY:1 TO 2 AS DIRECTED;?
     Route: 048
     Dates: start: 20171204
  10. BUPROPN HCL [Concomitant]
     Active Substance: BUPROPION HYDROCHLORIDE
  11. LEVOTHYROXIN [Concomitant]
     Active Substance: LEVOTHYROXINE
  12. CRINONE [Concomitant]
     Active Substance: PROGESTERONE
  13. GANIRELIX [Concomitant]
     Active Substance: GANIRELIX
  14. MINIVELLE [Concomitant]
     Active Substance: ESTRADIOL
  15. LEUPROLIDE [Concomitant]
     Active Substance: LEUPROLIDE

REACTIONS (2)
  - Maternal exposure during pregnancy [None]
  - Abortion spontaneous [None]

NARRATIVE: CASE EVENT DATE: 20181214
